FAERS Safety Report 6265226-3 (Version None)
Quarter: 2009Q3

REPORT INFORMATION
  Report Type: 
  Country: None (occurrence: None)
  Receive Date: 20090709
  Receipt Date: 20090709
  Transmission Date: 20100115
  Serious: Yes (Other)
  Sender: FDA-Public Use
  Company Number: None

PATIENT
  Sex: Male
  Weight: 75.2971 kg

DRUGS (2)
  1. SAVELLA [Suspect]
     Indication: FIBROMYALGIA
     Dosage: 12.5 DAILY X 2 ORAL 25 DAILY X 2 ORAL
     Route: 048
     Dates: start: 20090626, end: 20090627
  2. CLONAZEPAM [Concomitant]

REACTIONS (3)
  - AGITATION [None]
  - NERVOUSNESS [None]
  - SUICIDAL IDEATION [None]
